FAERS Safety Report 11025446 (Version 1)
Quarter: 2015Q2

REPORT INFORMATION
  Report Type: Spontaneous
  Country: CA (occurrence: CA)
  Receive Date: 20150414
  Receipt Date: 20150414
  Transmission Date: 20150821
  Serious: Yes (Death)
  Sender: FDA-Public Use
  Company Number: CA-TEVA-554260ACC

PATIENT
  Age: 44 Year
  Sex: Female
  Weight: 72.19 kg

DRUGS (12)
  1. ZOPICLONE [Concomitant]
     Active Substance: ZOPICLONE
     Dosage: UNKNOWN FORM STRENGTH
     Route: 065
  2. VENLAFAXINE XR [Suspect]
     Active Substance: VENLAFAXINE HYDROCHLORIDE
     Indication: PRODUCT USED FOR UNKNOWN INDICATION
     Dosage: CAPSULE, EXTENDED RELEASE
     Route: 065
  3. CLONAZEPAM. [Concomitant]
     Active Substance: CLONAZEPAM
     Dosage: UNKNOWN FORM STRENGTH
     Route: 065
  4. ETHANOL [Suspect]
     Active Substance: ALCOHOL
     Indication: PRODUCT USED FOR UNKNOWN INDICATION
     Dosage: UNKNOWN FORM STRENGTH
     Route: 065
  5. CHLORPROMAZINE [Concomitant]
     Active Substance: CHLORPROMAZINE
     Dosage: UNKNOWN FORM STRENGTH
     Route: 065
  6. DIAZEPAM. [Concomitant]
     Active Substance: DIAZEPAM
     Dosage: UNKNOWN FORM STRENGTH
     Route: 065
  7. OXAZEPAM. [Concomitant]
     Active Substance: OXAZEPAM
     Dosage: UNKNOWN FORM STRENGTH
     Route: 065
  8. OXYCODONE [Suspect]
     Active Substance: OXYCODONE
     Indication: PRODUCT USED FOR UNKNOWN INDICATION
     Dosage: UNKNOWN FORM STRENGTH
     Route: 065
  9. TEMAZEPAM. [Concomitant]
     Active Substance: TEMAZEPAM
     Dosage: UNKNOWN FORM STRENGTH
     Route: 065
  10. TRAZODONE [Concomitant]
     Active Substance: TRAZODONE HYDROCHLORIDE
     Dosage: UNKNOWN FORM STRENGTH
     Route: 065
  11. NORTRIPTYLINE [Suspect]
     Active Substance: NORTRIPTYLINE
     Indication: PRODUCT USED FOR UNKNOWN INDICATION
     Route: 065
  12. QUETIAPINE [Concomitant]
     Active Substance: QUETIAPINE
     Dosage: UNKNOWN FORM STRENGTH
     Route: 065

REACTIONS (2)
  - Alcohol poisoning [Fatal]
  - Toxicity to various agents [Fatal]
